FAERS Safety Report 23171096 (Version 1)
Quarter: 2023Q4

REPORT INFORMATION
  Report Type: Spontaneous
  Country: US (occurrence: None)
  Receive Date: 20231110
  Receipt Date: 20231110
  Transmission Date: 20240110
  Serious: Yes (Hospitalization)
  Sender: FDA-Public Use
  Company Number: None

PATIENT
  Sex: Male
  Weight: 41.8 kg

DRUGS (4)
  1. CISPLATIN [Suspect]
     Active Substance: CISPLATIN
  2. ZINECARD [Suspect]
     Active Substance: DEXRAZOXANE HYDROCHLORIDE
  3. DOXORUBICIN HYDROCHLORIDE [Suspect]
     Active Substance: DOXORUBICIN HYDROCHLORIDE
  4. SORAFENIB [Suspect]
     Active Substance: SORAFENIB

REACTIONS (8)
  - Pancytopenia [None]
  - Febrile neutropenia [None]
  - Hyperkalaemia [None]
  - Weight increased [None]
  - Acute kidney injury [None]
  - Device malfunction [None]
  - Abdominal distension [None]
  - Hypervolaemia [None]

NARRATIVE: CASE EVENT DATE: 20231023
